FAERS Safety Report 24649209 (Version 1)
Quarter: 2024Q4

REPORT INFORMATION
  Report Type: Spontaneous
  Country: US (occurrence: US)
  Receive Date: 20241121
  Receipt Date: 20241121
  Transmission Date: 20250115
  Serious: No
  Sender: SANOFI AVENTIS
  Company Number: US-SA-2024SA301359

PATIENT
  Sex: Female
  Weight: 119.29 kg

DRUGS (1)
  1. DUPIXENT [Suspect]
     Active Substance: DUPILUMAB
     Indication: Dermatitis atopic
     Dosage: 300 MG, QOW
     Route: 058

REACTIONS (6)
  - Weight decreased [Unknown]
  - Dermatitis atopic [Unknown]
  - Rash [Unknown]
  - Ocular hyperaemia [Unknown]
  - Lip erythema [Unknown]
  - Product dose omission in error [Unknown]
